FAERS Safety Report 8958572 (Version 1)
Quarter: 2012Q4

REPORT INFORMATION
  Report Type: Spontaneous
  Country: US (occurrence: None)
  Receive Date: 20120927
  Receipt Date: 20120927
  Transmission Date: 20130627
  Serious: No
  Sender: FDA-Public Use
  Company Number: None

PATIENT
  Age: 71 Year
  Sex: Male

DRUGS (1)
  1. PANTOPRAZOLE [Suspect]
     Indication: GASTROINTESTINAL ULCER
     Route: 048
     Dates: start: 20120724, end: 20120803

REACTIONS (7)
  - Rash generalised [None]
  - Rash erythematous [None]
  - Dermatitis [None]
  - Extravasation [None]
  - Drug eruption [None]
  - Erythema multiforme [None]
  - Skin exfoliation [None]
